FAERS Safety Report 15395800 (Version 1)
Quarter: 2018Q3

REPORT INFORMATION
  Report Type: Spontaneous
  Country: US (occurrence: US)
  Receive Date: 20180912
  Receipt Date: 20180912
  Transmission Date: 20181010
  Serious: Yes (Death, Hospitalization)
  Sender: FDA-Public Use
  Company Number: None

PATIENT
  Age: 61 Year
  Sex: Female

DRUGS (1)
  1. CAPECITABINE. [Suspect]
     Active Substance: CAPECITABINE
     Indication: DRUG THERAPY
     Dosage: ?          OTHER FREQUENCY:5 DAYS/WK,;?
     Route: 048
     Dates: start: 20180717, end: 20180822

REACTIONS (1)
  - Death [None]

NARRATIVE: CASE EVENT DATE: 20180822
